FAERS Safety Report 8587542-2 (Version None)
Quarter: 2012Q3

REPORT INFORMATION
  Report Type: 
  Country: None (occurrence: None)
  Receive Date: 20120810
  Receipt Date: 20120801
  Transmission Date: 20120928
  Serious: Yes (Hospitalization, Other)
  Sender: FDA-Public Use
  Company Number: US-RB-043079-12

PATIENT
  Sex: Male

DRUGS (2)
  1. SUBUTEX [Suspect]
     Indication: DRUG DEPENDENCE
     Dosage: UNIT DOSE UNKNOWN
     Route: 064
     Dates: end: 20120710
  2. PROZAC [Suspect]
     Indication: DEPRESSION
     Dosage: UNIT DOSE UNKNOWN
     Route: 064

REACTIONS (3)
  - JAUNDICE NEONATAL [None]
  - FOETAL EXPOSURE DURING PREGNANCY [None]
  - DRUG WITHDRAWAL SYNDROME NEONATAL [None]
